FAERS Safety Report 18511942 (Version 1)
Quarter: 2020Q4

REPORT INFORMATION
  Report Type: Spontaneous
  Country: JP (occurrence: JP)
  Receive Date: 20201117
  Receipt Date: 20201117
  Transmission Date: 20210114
  Serious: Yes (Disabling)
  Sender: FDA-Public Use
  Company Number: JP-DIAGNOSTIC GREEN GMBH-2096012

PATIENT
  Age: 63 Year
  Sex: Male

DRUGS (1)
  1. INDOCYANINE GREEN FOR INJECTION USP, 25 MG [Suspect]
     Active Substance: INDOCYANINE GREEN
     Indication: INTERNAL LIMITING MEMBRANE PEELING
     Route: 031

REACTIONS (2)
  - Visual field defect [Recovered/Resolved with Sequelae]
  - Off label use [Recovered/Resolved]

NARRATIVE: CASE EVENT DATE: 2018
